FAERS Safety Report 18867108 (Version 1)
Quarter: 2021Q1

REPORT INFORMATION
  Report Type: Spontaneous
  Country: US (occurrence: US)
  Receive Date: 20210209
  Receipt Date: 20210209
  Transmission Date: 20210420
  Serious: No
  Sender: FDA-Public Use
  Company Number: US-ELI_LILLY_AND_COMPANY-US202102004319

PATIENT
  Sex: Female

DRUGS (1)
  1. VERZENIO [Suspect]
     Active Substance: ABEMACICLIB
     Indication: PRODUCT USED FOR UNKNOWN INDICATION
     Dosage: UNK UNK, UNKNOWN
     Route: 065

REACTIONS (8)
  - Inflammation [Unknown]
  - Peripheral swelling [Unknown]
  - Paranasal sinus hypersecretion [Unknown]
  - Sinus pain [Unknown]
  - Paranasal sinus discomfort [Unknown]
  - Malaise [Unknown]
  - Dysphonia [Unknown]
  - Fatigue [Unknown]
